FAERS Safety Report 24548034 (Version 2)
Quarter: 2024Q4

REPORT INFORMATION
  Report Type: Spontaneous
  Country: US (occurrence: US)
  Receive Date: 20241025
  Receipt Date: 20241028
  Transmission Date: 20250115
  Serious: No
  Sender: NOVARTIS
  Company Number: US-002147023-NVSC2024US203088

PATIENT
  Sex: Female

DRUGS (3)
  1. KISQALI [Suspect]
     Active Substance: RIBOCICLIB
     Indication: Neoplasm malignant
     Dosage: 600 MG, QD
     Route: 048
     Dates: start: 202303
  2. KISQALI [Suspect]
     Active Substance: RIBOCICLIB
     Dosage: 400 MG, QD
     Route: 048
     Dates: start: 202406
  3. ANASTROZOLE [Concomitant]
     Active Substance: ANASTROZOLE
     Indication: Oestrogen therapy
     Dosage: 1 MG, QD
     Route: 065

REACTIONS (4)
  - Fatigue [Unknown]
  - Pain [Unknown]
  - Pain in extremity [Unknown]
  - Pain in extremity [Unknown]
